FAERS Safety Report 4614888-2 (Version None)
Quarter: 2005Q1

REPORT INFORMATION
  Report Type: 
  Country: None (occurrence: None)
  Receive Date: 20050318
  Receipt Date: 20050318
  Transmission Date: 20050727
  Serious: Yes (Hospitalization)
  Sender: FDA-Public Use
  Company Number: None

PATIENT
  Age: 69 Year
  Sex: Male
  Weight: 114.76 kg

DRUGS (5)
  1. FLUDARABINE PHOSPHATE [Suspect]
     Indication: ACUTE MYELOID LEUKAEMIA
     Dosage: 28 MG IV OVER 30^ X 5 DAYS
     Route: 042
     Dates: start: 20050211, end: 20050215
  2. CARBOPLATIN [Suspect]
     Indication: ACUTE MYELOID LEUKAEMIA
     Dosage: 235 MG IV OVER 24 H X 5 DOSES
     Route: 042
     Dates: start: 20050211, end: 20050216
  3. TOPOTECAN [Suspect]
     Indication: ACUTE MYELOID LEUKAEMIA
     Dosage: 1.6 MG IV OVER 24 H X 3 DIOSES
     Route: 042
     Dates: start: 20050216, end: 20050220
  4. THALIDOMIDE [Suspect]
     Indication: ACUTE MYELOID LEUKAEMIA
     Dosage: 100 MG PO ; 200 MG PO } QD
     Route: 048
     Dates: start: 20050211, end: 20050217
  5. THALIDOMIDE [Suspect]
     Indication: ACUTE MYELOID LEUKAEMIA
     Dosage: 100 MG PO ; 200 MG PO } QD
     Route: 048
     Dates: start: 20050218, end: 20050301

REACTIONS (7)
  - BLOODY DISCHARGE [None]
  - BRONCHOSCOPY ABNORMAL [None]
  - COMPUTERISED TOMOGRAM ABNORMAL [None]
  - CYTOLOGY ABNORMAL [None]
  - DYSPNOEA EXERTIONAL [None]
  - PULMONARY CONGESTION [None]
  - THERAPY NON-RESPONDER [None]
